FAERS Safety Report 10046767 (Version 1)
Quarter: 2014Q1

REPORT INFORMATION
  Report Type: Spontaneous
  Country: US (occurrence: None)
  Receive Date: 20140326
  Receipt Date: 20140326
  Transmission Date: 20141002
  Serious: Yes (Other)
  Sender: FDA-Public Use
  Company Number: AUR-APL-2014-03661

PATIENT
  Age: 83 Year
  Sex: Female

DRUGS (8)
  1. LISINOPRIL (LISINOPRIL) [Suspect]
     Indication: HYPERTENSION
     Dosage: (10 MG,1 D)
     Route: 048
     Dates: start: 2013
  2. ATENOLOL (ATENOLOL) [Suspect]
     Indication: HYPERTENSION
     Dosage: (12.5 MG, 1 D)
     Route: 048
     Dates: start: 2009
  3. OMEPRAZOLE(OMEPRAZOLE) [Suspect]
     Indication: GASTRIC POLYPS
     Dosage: (20 MG,1 D)
  4. OMEPRAZOLE(OMEPRAZOLE) [Suspect]
     Indication: GASTROOESOPHAGEAL REFLUX DISEASE
     Dosage: (20 MG,1 D)
  5. CRESTOR (ROSUVASTATIN CALCIUM) [Suspect]
     Indication: BLOOD CHOLESTEROL INCREASED
     Dosage: (5 MG,1 D)
     Dates: end: 201401
  6. SYNTHROID (LEVOTHYROXINE SODIUM) [Concomitant]
  7. WARFARIN (WARFAIN) [Concomitant]
  8. GABAPENTIN (GABAPENTIN) [Concomitant]

REACTIONS (4)
  - Neuropathy peripheral [None]
  - Balance disorder [None]
  - Deep vein thrombosis [None]
  - Breast cancer female [None]
